FAERS Safety Report 4545639-8 (Version None)
Quarter: 2004Q4

REPORT INFORMATION
  Report Type: 
  Country: None (occurrence: None)
  Receive Date: 20041223
  Receipt Date: 20040824
  Transmission Date: 20050328
  Serious: No
  Sender: FDA-Public Use
  Company Number: US-JNJFOC-20040808233

PATIENT
  Age: 26 Year
  Sex: Female
  Weight: 62.5964 kg

DRUGS (6)
  1. ORTHO EVRA [Suspect]
     Indication: POLYCYSTIC OVARIES
     Dosage: 1 DOSE(S), 3 IN 4 WEEK, TRANSDERMAL
     Route: 062
     Dates: start: 20040728
  2. DOXYCYLINE (DOXYCYCLINE) [Concomitant]
  3. FLEXERIL [Concomitant]
  4. SKELAXIN [Concomitant]
  5. VIOXX [Concomitant]
  6. ULTRACET [Concomitant]

REACTIONS (1)
  - AMENORRHOEA [None]
